FAERS Safety Report 14595894 (Version 1)
Quarter: 2018Q1

REPORT INFORMATION
  Report Type: Spontaneous
  Country: FR (occurrence: FR)
  Receive Date: 20180303
  Receipt Date: 20180303
  Transmission Date: 20180509
  Serious: Yes (Disabling)
  Sender: FDA-Public Use
  Company Number: FR-SUN PHARMACEUTICAL INDUSTRIES LTD-2018RR-164995

PATIENT
  Age: 32 Year
  Sex: Male

DRUGS (32)
  1. DI-ANTALVIC [Suspect]
     Active Substance: ACETAMINOPHEN\PROPOXYPHENE HYDROCHLORIDE
     Indication: PAIN
     Dosage: 2 DF
     Route: 048
     Dates: start: 20100606
  2. TEMERIT [Suspect]
     Active Substance: NEBIVOLOL
     Dosage: 2 DF, DAILY
     Route: 048
     Dates: end: 201207
  3. COVATINE [Concomitant]
     Active Substance: CAPTODIAME HYDROCHLORIDE
     Indication: PRODUCT USED FOR UNKNOWN INDICATION
     Dosage: UNK
     Route: 048
     Dates: start: 20120620, end: 201207
  4. DOLIPRANE [Concomitant]
     Active Substance: ACETAMINOPHEN
     Dosage: 1 DF
     Route: 048
     Dates: start: 20101213
  5. TEMERIT [Suspect]
     Active Substance: NEBIVOLOL
     Indication: CARDIAC DISORDER
     Dosage: 2 DF, DAILY
     Route: 048
     Dates: start: 20101115, end: 20110509
  6. SEROPRAM (CITALOPRAM HYDROBROMIDE) [Suspect]
     Active Substance: CITALOPRAM HYDROBROMIDE
     Indication: PRODUCT USED FOR UNKNOWN INDICATION
     Dosage: UNK
     Route: 048
  7. DOLIPRANE [Concomitant]
     Active Substance: ACETAMINOPHEN
     Indication: PRODUCT USED FOR UNKNOWN INDICATION
     Dosage: 1 DF
     Route: 048
     Dates: start: 20110201
  8. MIOREL (THIOCOLCHICOSIDE) [Concomitant]
     Active Substance: THIOCOLCHICOSIDE
     Dosage: 1 DF
     Route: 048
     Dates: start: 20101210
  9. VALIUM [Concomitant]
     Active Substance: DIAZEPAM
     Indication: PRODUCT USED FOR UNKNOWN INDICATION
     Dosage: 1 DF, IN TOTAL
     Route: 051
     Dates: start: 20101115, end: 20101115
  10. IXEL [Suspect]
     Active Substance: MILNACIPRAN HYDROCHLORIDE
     Indication: PANIC ATTACK
     Dosage: 2 DF, DAILY
     Route: 048
  11. MIOREL (THIOCOLCHICOSIDE) [Concomitant]
     Active Substance: THIOCOLCHICOSIDE
     Dosage: 1 DF
     Route: 048
     Dates: start: 20110201
  12. RIVOTRIL [Suspect]
     Active Substance: CLONAZEPAM
     Indication: NECK PAIN
     Dosage: UNK
     Route: 065
     Dates: start: 20110718, end: 201110
  13. RIVOTRIL [Suspect]
     Active Substance: CLONAZEPAM
     Dosage: UNK
     Route: 065
     Dates: start: 20110510
  14. ATARAX [Suspect]
     Active Substance: HYDROXYZINE HYDROCHLORIDE
     Indication: PRODUCT USED FOR UNKNOWN INDICATION
     Dosage: UNK
     Route: 048
     Dates: end: 201207
  15. MIOREL (THIOCOLCHICOSIDE) [Concomitant]
     Active Substance: THIOCOLCHICOSIDE
     Indication: PRODUCT USED FOR UNKNOWN INDICATION
     Dosage: 1 DF, DAILY
     Route: 048
     Dates: start: 20100606
  16. RIVOTRIL [Suspect]
     Active Substance: CLONAZEPAM
     Dosage: 15 GTT
     Route: 065
     Dates: start: 20110303, end: 20110327
  17. TETRAZEPAM [Suspect]
     Active Substance: TETRAZEPAM
     Indication: PRODUCT USED FOR UNKNOWN INDICATION
     Dosage: UNK
     Route: 048
     Dates: start: 20110726
  18. STRESAM [Concomitant]
     Active Substance: ETIFOXINE
     Indication: PRODUCT USED FOR UNKNOWN INDICATION
     Dosage: UNK
     Route: 048
     Dates: start: 20120327
  19. PRAXINOR (THEODRENALINE + CAFEDRINE) [Concomitant]
     Active Substance: CAFEDRINE\THEODRENALINE
     Indication: PRODUCT USED FOR UNKNOWN INDICATION
     Dosage: 2 DF, DAILY
     Route: 048
     Dates: start: 20101127
  20. RIVOTRIL [Suspect]
     Active Substance: CLONAZEPAM
     Dosage: 5-8 DROPS
     Route: 065
     Dates: start: 20110328
  21. LAROXYL [Suspect]
     Active Substance: AMITRIPTYLINE HYDROCHLORIDE
     Indication: NECK PAIN
     Dosage: 5-8 DROPS ()
     Route: 065
  22. TEMERIT [Suspect]
     Active Substance: NEBIVOLOL
     Dosage: 2 DF, DAILY
     Route: 048
     Dates: end: 201207
  23. NUREFLEX [Concomitant]
     Active Substance: IBUPROFEN
     Indication: PRODUCT USED FOR UNKNOWN INDICATION
     Dosage: UNK
     Route: 048
     Dates: start: 20101213
  24. DOLIPRANE [Concomitant]
     Active Substance: ACETAMINOPHEN
     Dosage: 1 DF
     Route: 048
     Dates: start: 20110328
  25. TANGANIL [Concomitant]
     Active Substance: ACETYLLEUCINE
     Indication: PRODUCT USED FOR UNKNOWN INDICATION
     Dosage: 3 DF, DAILY
     Route: 048
     Dates: start: 20110303
  26. SOLUPRED (PREDNISOLONE) [Concomitant]
     Active Substance: PREDNISOLONE
     Indication: PRODUCT USED FOR UNKNOWN INDICATION
     Dosage: UNK
     Route: 048
     Dates: start: 20110726
  27. PAROXETINE. [Suspect]
     Active Substance: PAROXETINE
     Indication: PRODUCT USED FOR UNKNOWN INDICATION
     Dosage: 2 TO 3 WEEKS
     Route: 048
     Dates: start: 20110201
  28. RIVOTRIL [Suspect]
     Active Substance: CLONAZEPAM
     Dosage: 5-8 DROPS
     Route: 065
     Dates: start: 20110219, end: 20110302
  29. TETRAZEPAM [Suspect]
     Active Substance: TETRAZEPAM
     Dosage: UNK
     Route: 048
  30. TETRAZEPAM [Suspect]
     Active Substance: TETRAZEPAM
     Dosage: UNK
     Route: 048
  31. MIOREL (THIOCOLCHICOSIDE) [Concomitant]
     Active Substance: THIOCOLCHICOSIDE
     Dosage: 1 DF
     Route: 048
     Dates: start: 20101213
  32. UVEDOSE [Concomitant]
     Active Substance: CHOLECALCIFEROL
     Indication: PRODUCT USED FOR UNKNOWN INDICATION
     Dosage: 1 DF, 2/WEEK, 1000000 IU
     Route: 065
     Dates: start: 20110219

REACTIONS (25)
  - Post-traumatic stress disorder [Recovered/Resolved]
  - Tachycardia [Recovered/Resolved]
  - Hypoacusis [Recovered/Resolved]
  - Discomfort [None]
  - Tinnitus [Recovered/Resolved]
  - Asthenia [Unknown]
  - Malaise [Recovered/Resolved]
  - Drug intolerance [Recovering/Resolving]
  - Adverse event [Unknown]
  - Hallucination, auditory [Recovered/Resolved]
  - Erectile dysfunction [Recovering/Resolving]
  - Psychotic disorder [Recovered/Resolved]
  - Panic attack [Recovered/Resolved]
  - Pain in extremity [Unknown]
  - Dyspnoea [Unknown]
  - Anxiety [Recovered/Resolved]
  - Memory impairment [Recovered/Resolved]
  - Hypertonia [Unknown]
  - Intervertebral disc disorder [Unknown]
  - Visual impairment [Recovered/Resolved]
  - Suicidal ideation [Recovered/Resolved]
  - Musculoskeletal pain [Unknown]
  - Agoraphobia [Recovered/Resolved]
  - Neurosis [Recovered/Resolved]
  - Personal relationship issue [Recovered/Resolved]

NARRATIVE: CASE EVENT DATE: 2010
